FAERS Safety Report 6768524-X (Version None)
Quarter: 2010Q2

REPORT INFORMATION
  Report Type: 
  Country: None (occurrence: None)
  Receive Date: 20100614
  Receipt Date: 20100609
  Transmission Date: 20101027
  Serious: Yes (Life-Threatening, Hospitalization)
  Sender: FDA-Public Use
  Company Number: FR-BAXTER-2010BH015449

PATIENT
  Age: 91 Year
  Sex: Female

DRUGS (16)
  1. ENDOXAN BAXTER [Suspect]
     Indication: ACQUIRED HAEMOPHILIA WITH ANTI FVIII, XI, OR XIII
     Route: 042
     Dates: start: 20090525, end: 20090525
  2. ENDOXAN BAXTER [Suspect]
     Indication: OFF LABEL USE
     Route: 042
     Dates: start: 20090525, end: 20090525
  3. ENDOXAN BAXTER [Suspect]
     Route: 042
     Dates: start: 20091016, end: 20091016
  4. ENDOXAN BAXTER [Suspect]
     Route: 042
     Dates: start: 20091016, end: 20091016
  5. FORADIL [Concomitant]
     Indication: CHRONIC OBSTRUCTIVE PULMONARY DISEASE
     Route: 048
  6. CORTANCYL [Concomitant]
     Indication: CHRONIC OBSTRUCTIVE PULMONARY DISEASE
     Route: 048
  7. DIFFU K [Concomitant]
     Indication: HYPOKALAEMIA
     Route: 048
  8. OMEPRAZOLE [Concomitant]
     Indication: DRUG USE FOR UNKNOWN INDICATION
     Route: 048
  9. CALCIUM CARBONATE [Concomitant]
     Indication: HYPOVITAMINOSIS
     Route: 048
  10. COLECALCIFEROL [Concomitant]
     Indication: HYPOVITAMINOSIS
     Route: 048
  11. RIVOTRIL [Concomitant]
     Indication: EPILEPSY
     Route: 048
  12. IMOVANE [Concomitant]
     Indication: INSOMNIA
     Route: 048
  13. UNICORDIUM [Concomitant]
     Indication: ANGINA PECTORIS
     Route: 048
  14. NITRODERM [Concomitant]
     Indication: ANGINA PECTORIS
     Route: 062
  15. LOXEN [Concomitant]
     Indication: HYPERTENSION
     Route: 048
  16. ACTONEL [Concomitant]
     Indication: OSTEITIS DEFORMANS
     Route: 048

REACTIONS (2)
  - CYTOLYTIC HEPATITIS [None]
  - DYSPNOEA [None]
